FAERS Safety Report 12218897 (Version 2)
Quarter: 2016Q1

REPORT INFORMATION
  Report Type: Spontaneous
  Country: DE (occurrence: DE)
  Receive Date: 20160329
  Receipt Date: 20160329
  Transmission Date: 20160526
  Serious: Yes (Other)
  Sender: FDA-Public Use
  Company Number: DE-BAYER-2016-060050

PATIENT
  Age: 31 Year
  Sex: Male

DRUGS (4)
  1. NASONEX [Suspect]
     Active Substance: MOMETASONE FUROATE
     Indication: ASPIRIN-EXACERBATED RESPIRATORY DISEASE
     Dosage: BASIS UNTIL 2 BY 2 PUSHES PER SIDE
     Route: 045
     Dates: start: 2014
  2. ASPIRIN N [Suspect]
     Active Substance: ASPIRIN
     Indication: IMMUNE TOLERANCE INDUCTION
     Dosage: 300 MG, QD SINCE 12 WEEKS
     Route: 048
     Dates: start: 201601
  3. URBASON [Concomitant]
     Active Substance: METHYLPREDNISOLONE
     Indication: ASPIRIN-EXACERBATED RESPIRATORY DISEASE
     Dosage: 40 MG
     Route: 048
  4. URBASON [Concomitant]
     Active Substance: METHYLPREDNISOLONE
     Indication: ASPIRIN-EXACERBATED RESPIRATORY DISEASE
     Dosage: 20 MG
     Route: 048

REACTIONS (3)
  - Exophthalmos [Not Recovered/Not Resolved]
  - Eyelid oedema [Not Recovered/Not Resolved]
  - Weight increased [Not Recovered/Not Resolved]

NARRATIVE: CASE EVENT DATE: 2016
